FAERS Safety Report 8464917-3 (Version None)
Quarter: 2012Q2

REPORT INFORMATION
  Report Type: 
  Country: None (occurrence: None)
  Receive Date: 20120323
  Receipt Date: 20110926
  Transmission Date: 20120825
  Serious: Yes (Other)
  Sender: FDA-Public Use
  Company Number: 163-21880-11093454

PATIENT
  Age: 76 Year
  Sex: Female
  Weight: 63.5036 kg

DRUGS (16)
  1. ZOLOFT [Concomitant]
  2. LOPRESSOR [Concomitant]
  3. SINGULAIR [Concomitant]
  4. CALCIUM/D (OS-CAL) [Concomitant]
  5. ASPIRIN [Concomitant]
  6. XANAX [Concomitant]
  7. ZOMETA [Concomitant]
  8. REVLIMID [Suspect]
     Indication: MULTIPLE MYELOMA
     Dosage: 25 MG, 21/7, PO
     Route: 048
     Dates: start: 20110606
  9. NEURONTIN [Concomitant]
  10. SYNTHROID [Concomitant]
  11. VIT D (ERGOCALCIFEROL) [Concomitant]
  12. FISH OIL (FISH OIL) [Concomitant]
  13. MUCINEX [Concomitant]
  14. ZITHROMAX [Concomitant]
  15. MULTIVITAMIN [Concomitant]
  16. DXM (DEXAMETHASONE) [Concomitant]

REACTIONS (5)
  - HEART RATE INCREASED [None]
  - DIZZINESS [None]
  - VISION BLURRED [None]
  - CHEST DISCOMFORT [None]
  - DYSPNOEA [None]
